FAERS Safety Report 7607073-3 (Version None)
Quarter: 2011Q3

REPORT INFORMATION
  Report Type: 
  Country: None (occurrence: None)
  Receive Date: 20110713
  Receipt Date: 20110630
  Transmission Date: 20111222
  Serious: Yes (Other)
  Sender: FDA-Public Use
  Company Number: US-UCBSA-036470

PATIENT
  Age: 54 Year
  Sex: Female

DRUGS (1)
  1. CIMZIA [Suspect]
     Dosage: ONCE EVERY THIRD WEEK - LAST DOSE ON 10-APR-2011
     Route: 058
     Dates: start: 20100101, end: 20110101

REACTIONS (2)
  - OESOPHAGEAL SPASM [None]
  - URTICARIA [None]
